FAERS Safety Report 21918428 (Version 1)
Quarter: 2023Q1

REPORT INFORMATION
  Report Type: Other
  Country: IN (occurrence: None)
  Receive Date: 20230127
  Receipt Date: 20230127
  Transmission Date: 20230418
  Serious: Yes (Other)
  Sender: FDA-Public Use
  Company Number: IN-ROCHE-3271685

PATIENT
  Age: 56 Year
  Sex: Female

DRUGS (11)
  1. BEVACIZUMAB [Suspect]
     Active Substance: BEVACIZUMAB
     Indication: Ovarian cancer
     Route: 042
  2. BEVACIZUMAB [Suspect]
     Active Substance: BEVACIZUMAB
     Indication: BRCA1 gene mutation
     Dosage: COMPLETED MORE CYCLES
     Route: 042
     Dates: start: 202105
  3. BEVACIZUMAB [Suspect]
     Active Substance: BEVACIZUMAB
     Route: 042
  4. RUCAPARIB [Suspect]
     Active Substance: RUCAPARIB
     Indication: BRCA1 gene mutation
     Route: 048
     Dates: start: 202107
  5. RUCAPARIB [Suspect]
     Active Substance: RUCAPARIB
     Indication: Ovarian cancer
     Route: 048
  6. RUCAPARIB [Suspect]
     Active Substance: RUCAPARIB
     Route: 048
  7. RUCAPARIB [Suspect]
     Active Substance: RUCAPARIB
     Route: 048
  8. PACLITAXEL [Concomitant]
     Active Substance: PACLITAXEL
     Indication: Ovarian cancer
     Route: 042
  9. PACLITAXEL [Concomitant]
     Active Substance: PACLITAXEL
     Dosage: COMPLETED THREE MORE CYCLES
     Route: 042
     Dates: start: 202105
  10. CARBOPLATIN [Concomitant]
     Active Substance: CARBOPLATIN
     Indication: Ovarian cancer
     Dosage: AREA UNDER THE CURVE (AUC) 6
     Route: 042
  11. CARBOPLATIN [Concomitant]
     Active Substance: CARBOPLATIN
     Dosage: COMPLETED THREE MORE CYCLES
     Route: 042
     Dates: start: 202105

REACTIONS (3)
  - Anaemia [Recovered/Resolved]
  - Diarrhoea [Recovered/Resolved]
  - Fatigue [Recovered/Resolved]
